FAERS Safety Report 13151061 (Version 1)
Quarter: 2017Q1

REPORT INFORMATION
  Report Type: Spontaneous
  Country: CA (occurrence: CA)
  Receive Date: 20170125
  Receipt Date: 20170125
  Transmission Date: 20170428
  Serious: Yes (Other)
  Sender: FDA-Public Use
  Company Number: CA-BRISTOL-MYERS SQUIBB COMPANY-BMS-2017-004116

PATIENT
  Age: 14 Year
  Sex: Female
  Weight: 68.27 kg

DRUGS (2)
  1. CITALOPRAM [Concomitant]
     Active Substance: CITALOPRAM HYDROBROMIDE
     Indication: PRODUCT USED FOR UNKNOWN INDICATION
     Route: 065
  2. ABILIFY [Suspect]
     Active Substance: ARIPIPRAZOLE
     Indication: PSYCHOTIC DISORDER
     Dosage: 50 MG, QD
     Route: 048

REACTIONS (4)
  - Intentional self-injury [Recovered/Resolved]
  - Product use issue [Unknown]
  - Prescribed overdose [Unknown]
  - Obsessive-compulsive symptom [Recovered/Resolved]
